FAERS Safety Report 9255550 (Version 2)
Quarter: 2013Q4

REPORT INFORMATION
  Report Type: Spontaneous
  Country: US (occurrence: US)
  Receive Date: 20130425
  Receipt Date: 20131007
  Transmission Date: 20140711
  Serious: Yes (Death, Hospitalization)
  Sender: FDA-Public Use
  Company Number: US-GLAXOSMITHKLINE-A1015122A

PATIENT
  Age: 81 Year
  Sex: Male

DRUGS (2)
  1. PROMACTA [Suspect]
     Indication: PLATELET COUNT DECREASED
     Dosage: 75MG PER DAY
     Route: 048
     Dates: start: 20111129
  2. JANUVIA [Suspect]
     Indication: DIABETES MELLITUS
     Dosage: 100MG PER DAY
     Route: 048
     Dates: start: 201212

REACTIONS (15)
  - Death [Fatal]
  - Urticaria [Unknown]
  - Pruritus [Unknown]
  - Paraesthesia [Unknown]
  - Burning sensation [Unknown]
  - Scratch [Unknown]
  - Dizziness [Unknown]
  - Blood glucose decreased [Unknown]
  - Scab [Unknown]
  - Gastroenteritis viral [Unknown]
  - Vomiting [Unknown]
  - Diarrhoea [Unknown]
  - Drug interaction [Unknown]
  - Therapy cessation [Unknown]
  - Dermatitis acneiform [Unknown]
